FAERS Safety Report 11939878 (Version 1)
Quarter: 2016Q1

REPORT INFORMATION
  Report Type: Other
  Country: NL (occurrence: NL)
  Receive Date: 20160122
  Receipt Date: 20160122
  Transmission Date: 20160526
  Serious: Yes (Life-Threatening, Hospitalization)
  Sender: FDA-Public Use
  Company Number: NL-ASTELLAS-2016US001808

PATIENT
  Sex: Female

DRUGS (7)
  1. ELOCON [Suspect]
     Active Substance: MOMETASONE FUROATE
     Indication: ECZEMA
     Dosage: 1 DF (1 MG/G), UNKNOWN FREQ.
     Route: 065
     Dates: start: 2002, end: 2007
  2. TRIAMCINOLONACETONIDE [Suspect]
     Active Substance: TRIAMCINOLONE ACETONIDE
     Indication: ECZEMA
     Dosage: 0.1 %, UNKNOWN FREQ.
     Route: 065
     Dates: start: 2007
  3. BETAMETHASONE. [Suspect]
     Active Substance: BETAMETHASONE
     Indication: ECZEMA
     Dosage: 1 DF (1 MG/G), UNKNOWN FREQ.
     Route: 065
     Dates: start: 2007
  4. HYDROCORTISONE. [Suspect]
     Active Substance: HYDROCORTISONE
     Indication: ECZEMA
     Dosage: 1 DF (10 MG/G), UNKNOWN FREQ.
     Route: 065
     Dates: start: 2002, end: 2010
  5. EMOVATE /00485702/ [Suspect]
     Active Substance: CLOBETASONE BUTYRATE
     Indication: ECZEMA
     Dosage: 1 DF (0.5 MG/G), UNKNOWN FREQ.
     Route: 065
     Dates: start: 2007, end: 2011
  6. CUTIVATE [Suspect]
     Active Substance: FLUTICASONE PROPIONATE
     Indication: ECZEMA
     Dosage: 1 DF (0.5 MG) , UNKNOWN FREQ.
     Route: 065
     Dates: start: 2000, end: 2008
  7. PROTOPIC [Suspect]
     Active Substance: TACROLIMUS
     Indication: ECZEMA
     Dosage: 1 DF (1 MG/G), 10 TIMES A MONTH 1 PIECE
     Dates: start: 1985

REACTIONS (3)
  - Skin atrophy [Recovering/Resolving]
  - Steroid withdrawal syndrome [Recovering/Resolving]
  - Eczema [Recovering/Resolving]

NARRATIVE: CASE EVENT DATE: 2006
